FAERS Safety Report 8576819-2 (Version None)
Quarter: 2012Q3

REPORT INFORMATION
  Report Type: 
  Country: None (occurrence: None)
  Receive Date: 20120807
  Receipt Date: 20120803
  Transmission Date: 20120928
  Serious: Yes (Hospitalization)
  Sender: FDA-Public Use
  Company Number: US-AMGEN-US353676

PATIENT
  Age: 53 Year
  Sex: Female

DRUGS (23)
  1. CLONIDINE [Concomitant]
     Dosage: .2 MG, BID
     Route: 048
     Dates: start: 20090319
  2. TRAMADOL HCL [Concomitant]
     Dosage: 50 MG, Q8H
     Route: 048
     Dates: start: 20081004
  3. LORATADINE [Concomitant]
     Dosage: 10 MG, QD
     Route: 048
     Dates: start: 20081120
  4. VENOFER [Concomitant]
     Dosage: 200 MG, QWK
     Route: 042
     Dates: start: 20090324
  5. DOXERCALCIFEROL [Concomitant]
     Dosage: 2 MUG, 3 TIMES/WK
     Route: 042
     Dates: start: 20090604
  6. LISINOPRIL [Concomitant]
     Dosage: 10 MG, BID
     Route: 048
     Dates: start: 20081016
  7. OMEPRAZOLE [Concomitant]
     Dosage: 20 MG, QD
     Route: 048
     Dates: start: 20081004
  8. RENAGEL [Concomitant]
     Dosage: 2400 MG, TID
     Route: 048
     Dates: start: 20081004
  9. TOPROL-XL [Concomitant]
     Dosage: 100 MG, QD
     Route: 048
     Dates: start: 20090319
  10. HYDROCODONE BITARTRATE [Concomitant]
     Dosage: UNK UNK, Q6H
     Route: 048
     Dates: start: 20071017
  11. CALCIUM CARBONATE [Concomitant]
     Dosage: UNK UNK, TID
     Route: 048
     Dates: start: 20080216
  12. APAP TAB [Concomitant]
  13. ACETAMINOPHEN [Concomitant]
     Dosage: UNK UNK, Q4H
     Route: 048
     Dates: start: 20060103
  14. CEPHALEXIN MONOHYDRATE [Concomitant]
     Dosage: 500 MG, TID
     Route: 048
     Dates: start: 20081224
  15. IPRATROPIUM BROMIDE AND ALBUTEROL SULFATE [Concomitant]
     Dosage: UNK UNK, TID
     Route: 045
     Dates: start: 20081009
  16. EPOGEN [Concomitant]
     Dosage: 2800 IU, 3 TIMES/WK
     Route: 042
     Dates: start: 20090516
  17. MECLIZINE [Concomitant]
     Dosage: 25 MG, Q8H
     Route: 048
     Dates: start: 20081120
  18. NAPROXEN [Concomitant]
     Dosage: 500 MG, BID
     Route: 048
     Dates: start: 20081004
  19. GABAPENTIN [Concomitant]
     Dosage: 300 MG, PRN
     Route: 048
     Dates: start: 20080105
  20. ATENOLOL [Concomitant]
     Dosage: 25 MG, BID
     Route: 048
     Dates: start: 20090319
  21. ACETAMINOPHEN AND HYDROCODONE BITARTRATE [Concomitant]
     Dosage: 500 MG, PRN
     Route: 048
     Dates: start: 20090330
  22. CINACALCET HYDROCHLORIDE [Suspect]
     Indication: HYPERPARATHYROIDISM SECONDARY
     Dosage: UNK BLINDED, QD
     Route: 048
     Dates: start: 20070719
  23. METOPROLOL SUCCINATE [Concomitant]
     Dosage: 50 MG, BID
     Route: 048
     Dates: start: 20081004

REACTIONS (1)
  - GASTRIC ULCER [None]
